FAERS Safety Report 11252162 (Version 1)
Quarter: 2015Q3

REPORT INFORMATION
  Report Type: Spontaneous
  Country: US (occurrence: US)
  Receive Date: 20150708
  Receipt Date: 20150708
  Transmission Date: 20151125
  Serious: Yes (Other)
  Sender: FDA-Public Use
  Company Number: US-ELI_LILLY_AND_COMPANY-US201308005736

PATIENT
  Age: 85 Year
  Sex: Male

DRUGS (2)
  1. GEMZAR [Suspect]
     Active Substance: GEMCITABINE HYDROCHLORIDE
     Indication: METASTATIC NEOPLASM
     Route: 042
  2. ABRAXANE [Concomitant]
     Active Substance: PACLITAXEL

REACTIONS (2)
  - Off label use [Unknown]
  - Pneumonitis [Unknown]
